FAERS Safety Report 5210177-6 (Version None)
Quarter: 2006Q4

REPORT INFORMATION
  Report Type: 
  Country: None (occurrence: None)
  Receive Date: 20061103
  Receipt Date: 20061004
  Transmission Date: 20070319
  Serious: Yes (Other)
  Sender: FDA-Public Use
  Company Number: 466210

PATIENT
  Age: 46 Year
  Sex: Female

DRUGS (3)
  1. BONIVA [Suspect]
     Indication: DRUG USE FOR UNKNOWN INDICATION
     Dosage: 3MG INTRAVENOUS
     Route: 042
     Dates: start: 20060905
  2. SYNTHROID [Concomitant]
  3. B12 (CYANOCOBALAMIN) [Concomitant]

REACTIONS (4)
  - EMOTIONAL DISORDER [None]
  - HOT FLUSH [None]
  - INSOMNIA [None]
  - NIGHT SWEATS [None]
